FAERS Safety Report 15930687 (Version 2)
Quarter: 2021Q4

REPORT INFORMATION
  Report Type: Spontaneous
  Country: US (occurrence: US)
  Receive Date: 20190207
  Receipt Date: 20211203
  Transmission Date: 20220303
  Serious: Yes (Hospitalization, Disabling, Other)
  Sender: FDA-Public Use
  Company Number: US-TEVA-2019-US-1007032

PATIENT
  Age: 57 Year
  Sex: Female
  Weight: 104.3 kg

DRUGS (46)
  1. DOCETAXEL [Suspect]
     Active Substance: DOCETAXEL
     Indication: Breast cancer
     Dosage: DOSAGE: 75 MG/M2, NO OF CYCLES: 04, FREQUENCY: EVERY 3 WEEKS
     Route: 042
     Dates: start: 20140730, end: 20140730
  2. DOCETAXEL [Suspect]
     Active Substance: DOCETAXEL
     Dosage: DOSAGE: 60 MG/M2, NO OF CYCLES: 04, FREQUENCY: EVERY 3 WEEKS
     Route: 042
     Dates: start: 20140820, end: 20140820
  3. DOCETAXEL [Suspect]
     Active Substance: DOCETAXEL
     Dosage: DOSAGE: 60 MG/M2, NO OF CYCLES: 04, FREQUENCY: EVERY 3 WEEKS
     Route: 042
     Dates: start: 20140910, end: 20140910
  4. DOCETAXEL [Suspect]
     Active Substance: DOCETAXEL
     Indication: Breast cancer
     Dosage: DOSAGE: 75 MG/M2, NO OF CYCLES: 04, FREQUENCY: EVERY 3 WEEKS
     Route: 042
     Dates: start: 20140624, end: 20140624
  5. CYTOXAN [Suspect]
     Active Substance: CYCLOPHOSPHAMIDE
     Indication: Breast cancer
     Dosage: DOSAGE: 600 MG/M2, NO OF CYCLES: 04, FREQUENCY: EVERY 3 WEEKS
     Route: 042
     Dates: start: 20140626, end: 20140910
  6. LISINOPRIL [Concomitant]
     Active Substance: LISINOPRIL
     Dosage: ONGOING
     Dates: start: 2007
  7. GLUCOPHAGE [Concomitant]
     Active Substance: METFORMIN HYDROCHLORIDE
     Dates: start: 2007
  8. GLUCOPHAGE [Concomitant]
     Active Substance: METFORMIN HYDROCHLORIDE
     Dosage: 2 TIMES DAILY WITH MEALS, ONGOING
     Route: 048
     Dates: start: 20140528
  9. LANTUS [Concomitant]
     Active Substance: INSULIN GLARGINE
     Dosage: 20 UNITS, DAILY, ONGOING
     Route: 058
  10. HYDROCHLOROTHIAZIDE [Concomitant]
     Active Substance: HYDROCHLOROTHIAZIDE
     Route: 065
     Dates: start: 20131017
  11. ECOTRIN [Concomitant]
     Active Substance: ASPIRIN
     Dosage: DAILY, ONGOING
     Route: 048
     Dates: start: 20131017
  12. HEPARIN [Concomitant]
     Active Substance: HEPARIN SODIUM
     Dosage: 5000 UNITS, ONGOING
     Route: 058
     Dates: start: 20131017
  13. MAGNESIUM SULFATE [Concomitant]
     Active Substance: MAGNESIUM SULFATE
     Dosage: IN DEXTROSE 2 GM/100 ML, ONCE
     Route: 042
     Dates: start: 20131018
  14. GLUCOTROL [Concomitant]
     Active Substance: GLIPIZIDE
     Dosage: BY MOUTH TWO TIMES DAILY BEFORE MEALS, ONGOING
     Route: 048
     Dates: start: 20131017
  15. CARDIZEM [Concomitant]
     Active Substance: DILTIAZEM HYDROCHLORIDE
     Dosage: 4 TIMES A DAY, ONGOING
     Route: 048
     Dates: start: 20131017
  16. CARDIZEM [Concomitant]
     Active Substance: DILTIAZEM HYDROCHLORIDE
     Dosage: AT NIGHT
     Route: 048
     Dates: start: 20140528
  17. ACETAMINOPHEN [Concomitant]
     Active Substance: ACETAMINOPHEN
     Route: 065
  18. ZOFRAN [Concomitant]
     Active Substance: ONDANSETRON HYDROCHLORIDE
     Dosage: EVERY 6 HOURS PRN, ONGOING
     Route: 042
     Dates: start: 20131017
  19. ZOFRAN [Concomitant]
     Active Substance: ONDANSETRON HYDROCHLORIDE
     Route: 042
     Dates: start: 20140528, end: 20140528
  20. INSULIN HUMAN [Concomitant]
     Active Substance: INSULIN HUMAN
     Dosage: 0-14 UNITS, 4 TIMES BEFORE MEALS AND NIGHT
     Route: 058
     Dates: start: 20131017, end: 20131018
  21. INSULIN HUMAN [Concomitant]
     Active Substance: INSULIN HUMAN
     Dosage: 4 TIMES A DAY
     Route: 058
     Dates: start: 20140528, end: 20140529
  22. PROTONIX [Concomitant]
     Active Substance: PANTOPRAZOLE SODIUM
     Dosage: DAILY, ONGOING
     Route: 042
     Dates: start: 20140528
  23. PERCOCET [Concomitant]
     Active Substance: ACETAMINOPHEN\OXYCODONE HYDROCHLORIDE
     Dosage: 5-325 MG, 1-2 TAB, EVERY 4 HOURS PRN, ONGOING
     Route: 048
     Dates: start: 20140528
  24. MORPHINE [Concomitant]
     Active Substance: MORPHINE
     Dosage: 2-4 MG, EVERY 4 HOURS PRN
     Route: 042
     Dates: start: 20131017, end: 20131018
  25. MORPHINE [Concomitant]
     Active Substance: MORPHINE
     Dosage: 2-6 MG, EVERY 3  HOURS PRN
     Route: 042
     Dates: start: 20140528
  26. ANCEF [Concomitant]
     Active Substance: CEFAZOLIN SODIUM
     Dosage: 1 GM/50 ML
     Route: 042
     Dates: start: 20140528, end: 20140528
  27. PROPOFOL [Concomitant]
     Active Substance: PROPOFOL
     Dosage: 10 MG/ML
     Route: 065
  28. NEOSTIGMINE [Concomitant]
     Active Substance: NEOSTIGMINE
     Dosage: 5 MG/ML
     Route: 065
     Dates: start: 20140528
  29. SODIUM CHLORIDE [Concomitant]
     Active Substance: SODIUM CHLORIDE
     Route: 040
     Dates: start: 20131017
  30. NITROSTAT [Concomitant]
     Active Substance: NITROGLYCERIN
     Dosage: PRN, ONGOING
     Route: 060
     Dates: start: 20131017
  31. ATIVAN [Concomitant]
     Active Substance: LORAZEPAM
     Dosage: EVERY 6 HOURS, PRN
     Route: 042
     Dates: start: 20131017
  32. TYLENOL [Concomitant]
     Active Substance: ACETAMINOPHEN
     Dosage: EVERY 4 HOURS PRN, ONGOING
     Route: 048
     Dates: start: 20131017
  33. DILAUDID [Concomitant]
     Active Substance: HYDROMORPHONE HYDROCHLORIDE
     Dosage: 0.2-0.5 MG, EVERY 10 MIN PRN
     Route: 042
     Dates: end: 20140528
  34. PHENERGAN [Concomitant]
     Active Substance: PROMETHAZINE HYDROCHLORIDE
     Dosage: 6.25 -12.5 MG, EVERY 10 MIN PRN
     Route: 042
     Dates: start: 20140528
  35. LABETALOL [Concomitant]
     Active Substance: LABETALOL\LABETALOL HYDROCHLORIDE
     Dosage: EVERY 5 MIN, PRN
     Route: 042
     Dates: start: 20140528
  36. BENADRYL [Concomitant]
     Active Substance: DIPHENHYDRAMINE HYDROCHLORIDE
     Dosage: PRN, ONGOING
     Route: 042
     Dates: start: 20140528
  37. DEMEROL [Concomitant]
     Active Substance: MEPERIDINE HYDROCHLORIDE
     Dosage: EVERY 15 MIN, PRN
     Route: 042
     Dates: start: 20140528
  38. DECADRON [Concomitant]
     Active Substance: DEXAMETHASONE
     Dosage: ONCE, ONGOING
     Route: 042
     Dates: start: 20140624
  39. ADRENALIN [Concomitant]
     Active Substance: EPINEPHRINE
     Dosage: 1 MG/ML
     Route: 065
     Dates: start: 20140624
  40. SOLU-MEDROL [Concomitant]
     Active Substance: METHYLPREDNISOLONE SODIUM SUCCINATE
     Dosage: 125 MG/2 ML
     Route: 065
     Dates: start: 20140624
  41. SOLU-CORTEF [Concomitant]
     Active Substance: HYDROCORTISONE SODIUM SUCCINATE
     Dosage: 100 MG/2 ML
     Route: 065
     Dates: start: 20140624
  42. PEPCID [Concomitant]
     Active Substance: FAMOTIDINE
     Dosage: 20 MG/ML
     Route: 042
     Dates: start: 20140624
  43. LIDOCAINE [Concomitant]
     Active Substance: LIDOCAINE
     Dosage: PRN
     Route: 023
     Dates: start: 20140528
  44. LACTATED RINGERS SOLUTION [Concomitant]
     Active Substance: CALCIUM CHLORIDE\POTASSIUM CHLORIDE\SODIUM CHLORIDE\SODIUM LACTATE
     Dosage: 20ML/HR
     Route: 042
     Dates: start: 20140528
  45. GLYCOPYRROLATE [Concomitant]
     Active Substance: GLYCOPYRROLATE
     Dosage: 1 MG/5 ML
     Route: 065
     Dates: start: 20140528
  46. MIDAZOLAM [Concomitant]
     Active Substance: MIDAZOLAM
     Dosage: 1 MG/ML
     Route: 065
     Dates: start: 20140528

REACTIONS (7)
  - Thrombosis [Unknown]
  - White blood cell count decreased [Unknown]
  - Alopecia totalis [Recovered/Resolved]
  - Alopecia areata [Recovered/Resolved]
  - Madarosis [Recovered/Resolved]
  - Hair texture abnormal [Not Recovered/Not Resolved]
  - Hair colour changes [Not Recovered/Not Resolved]

NARRATIVE: CASE EVENT DATE: 20140101
